FAERS Safety Report 6824841-6 (Version None)
Quarter: 2010Q3

REPORT INFORMATION
  Report Type: 
  Country: None (occurrence: None)
  Receive Date: 20100708
  Receipt Date: 20061205
  Transmission Date: 20110219
  Serious: No
  Sender: FDA-Public Use
  Company Number: US-PFIZER INC-2006152002

PATIENT
  Age: 50 Year
  Sex: Male
  Weight: 124.74 kg

DRUGS (2)
  1. CHANTIX [Suspect]
     Indication: SMOKING CESSATION THERAPY
     Dates: start: 20061128
  2. XANAX [Suspect]
     Indication: ANXIETY
     Dates: end: 20061202

REACTIONS (2)
  - HEADACHE [None]
  - VERTIGO [None]
